FAERS Safety Report 24016834 (Version 1)
Quarter: 2024Q2

REPORT INFORMATION
  Report Type: Report from Study
  Country: US (occurrence: US)
  Receive Date: 20240626
  Receipt Date: 20240626
  Transmission Date: 20240715
  Serious: Yes (Other)
  Sender: FDA-Public Use
  Company Number: US-JNJFOC-20230334249

PATIENT
  Age: 74 Year
  Sex: Male

DRUGS (13)
  1. REMICADE [Suspect]
     Active Substance: INFLIXIMAB
     Indication: Psoriasis
     Route: 041
     Dates: start: 20090727, end: 20091109
  2. REMICADE [Suspect]
     Active Substance: INFLIXIMAB
     Route: 041
     Dates: start: 20091214, end: 20100419
  3. REMICADE [Suspect]
     Active Substance: INFLIXIMAB
     Route: 041
     Dates: start: 20100601, end: 20100830
  4. REMICADE [Suspect]
     Active Substance: INFLIXIMAB
     Route: 041
     Dates: start: 20081027, end: 20081027
  5. REMICADE [Suspect]
     Active Substance: INFLIXIMAB
     Route: 041
     Dates: start: 20110809, end: 20110809
  6. REMICADE [Suspect]
     Active Substance: INFLIXIMAB
     Route: 041
     Dates: start: 20110531, end: 20110531
  7. REMICADE [Suspect]
     Active Substance: INFLIXIMAB
     Route: 041
     Dates: start: 20110712, end: 20110712
  8. REMICADE [Suspect]
     Active Substance: INFLIXIMAB
     Route: 041
     Dates: start: 20090526, end: 20090526
  9. REMICADE [Suspect]
     Active Substance: INFLIXIMAB
     Route: 041
     Dates: start: 20090703, end: 20090703
  10. REMICADE [Suspect]
     Active Substance: INFLIXIMAB
     Route: 041
     Dates: start: 20101130, end: 20110419
  11. REMICADE [Suspect]
     Active Substance: INFLIXIMAB
     Route: 041
     Dates: start: 20101011, end: 20101011
  12. REMICADE [Suspect]
     Active Substance: INFLIXIMAB
     Route: 041
     Dates: start: 20120327, end: 20150804
  13. REMICADE [Suspect]
     Active Substance: INFLIXIMAB
     Route: 041
     Dates: start: 20111004, end: 20120214

REACTIONS (10)
  - Basal cell carcinoma [Unknown]
  - Basal cell carcinoma [Unknown]
  - Basal cell carcinoma [Unknown]
  - Basosquamous carcinoma of skin [Unknown]
  - Basosquamous carcinoma of skin [Unknown]
  - Basosquamous carcinoma of skin [Unknown]
  - Basosquamous carcinoma of skin [Unknown]
  - Malignant melanoma [Unknown]
  - Actinic keratosis [Unknown]
  - Actinic keratosis [Unknown]

NARRATIVE: CASE EVENT DATE: 20110823
